FAERS Safety Report 25971589 (Version 4)
Quarter: 2025Q4

REPORT INFORMATION
  Report Type: Spontaneous
  Country: JP (occurrence: JP)
  Receive Date: 20251029
  Receipt Date: 20251119
  Transmission Date: 20260118
  Serious: No
  Sender: CSL BEHRING
  Company Number: JP-BEH-2025223342

PATIENT
  Age: 81 Year
  Sex: Female

DRUGS (1)
  1. FIBROGAMMIN P [Suspect]
     Active Substance: FACTOR XIII CONCENTRATE (HUMAN)
     Indication: Fistula
     Dosage: 6 VIALS, 24 CC/DAY
     Route: 042
     Dates: start: 20251024, end: 20251025

REACTIONS (2)
  - Pulmonary embolism [Fatal]
  - Condition aggravated [Unknown]

NARRATIVE: CASE EVENT DATE: 20251025
